FAERS Safety Report 13845320 (Version 1)
Quarter: 2017Q3

REPORT INFORMATION
  Report Type: Spontaneous
  Country: IN (occurrence: IN)
  Receive Date: 20170808
  Receipt Date: 20170808
  Transmission Date: 20171127
  Serious: Yes (Other)
  Sender: FDA-Public Use
  Company Number: IN-IMPAX LABORATORIES, INC-2017-IPXL-02332

PATIENT
  Age: 40 Year
  Sex: Female

DRUGS (1)
  1. CHLOROQUINE PHOSPHATE. [Suspect]
     Active Substance: CHLOROQUINE PHOSPHATE
     Indication: MALARIA
     Dosage: UNK
     Route: 048

REACTIONS (1)
  - Depression suicidal [Recovering/Resolving]
